FAERS Safety Report 6625544-3 (Version None)
Quarter: 2010Q1

REPORT INFORMATION
  Report Type: 
  Country: None (occurrence: None)
  Receive Date: 20100223
  Receipt Date: 20091102
  Transmission Date: 20100710
  Serious: No
  Sender: FDA-Public Use
  Company Number: 8054337

PATIENT
  Sex: Female

DRUGS (1)
  1. CERTOLIZUMAB PEFOL (UCB, INC) [Suspect]
     Dosage: (400 MG DOSE FREQ.: ONCE MONTHLY SUBCUTANEOUS)
     Route: 058
     Dates: start: 20090801

REACTIONS (2)
  - DECREASED APPETITE [None]
  - THIRST [None]
